FAERS Safety Report 5128265-1 (Version None)
Quarter: 2006Q4

REPORT INFORMATION
  Report Type: 
  Country: None (occurrence: None)
  Receive Date: 20061017
  Receipt Date: 20061006
  Transmission Date: 20070319
  Serious: Yes (Life-Threatening, Hospitalization)
  Sender: FDA-Public Use
  Company Number: PHFR2006GB03007

PATIENT
  Sex: Female
  Weight: 72 kg

DRUGS (13)
  1. MYCOPHENOLIC ACID [Suspect]
     Dosage: 720 MG, BID
     Route: 048
     Dates: start: 20060305, end: 20060506
  2. OMEPRAZOLE [Concomitant]
     Dosage: 20 MG, QD
     Route: 048
     Dates: start: 20060305
  3. PRAVASTATIN [Concomitant]
     Dosage: 20 MG, QD
     Route: 048
     Dates: start: 20060305
  4. PREDNISOLONE [Concomitant]
     Dosage: 12.5 MG, QD
     Route: 048
     Dates: start: 20060305
  5. RAMIPRIL [Concomitant]
     Dosage: 5 MG, QD
     Route: 048
  6. RISEDRONATE SODIUM [Concomitant]
     Dosage: 35 MG, QW
     Route: 048
     Dates: start: 20060305
  7. TEMAZEPAM [Concomitant]
     Dosage: 20 MG, QD
     Route: 048
  8. DARAPRIM [Suspect]
     Dosage: 25MG
     Route: 048
     Dates: start: 20060305, end: 20060612
  9. SEPTRIN [Suspect]
     Dosage: 480 MG, QD
     Route: 048
     Dates: start: 20060305
  10. VALCYTE [Suspect]
     Dosage: 450 MG, QD
     Route: 048
     Dates: start: 20060305, end: 20060609
  11. BUMETANIDE [Concomitant]
     Dosage: 2 MG, BID
     Route: 048
  12. NEORAL [Concomitant]
     Dosage: 125 MG, QD
     Route: 048
  13. NEORAL [Concomitant]
     Dosage: 100 MG, QD
     Route: 048
     Dates: start: 20060305

REACTIONS (6)
  - HAEMOGLOBIN DECREASED [None]
  - LYMPHOCYTE COUNT DECREASED [None]
  - MEAN CELL VOLUME INCREASED [None]
  - NEUTROPHIL COUNT DECREASED [None]
  - RED BLOOD CELL COUNT DECREASED [None]
  - WHITE BLOOD CELL COUNT DECREASED [None]
